FAERS Safety Report 15668638 (Version 2)
Quarter: 2018Q4

REPORT INFORMATION
  Report Type: Report from Study
  Country: IT (occurrence: IT)
  Receive Date: 20181129
  Receipt Date: 20181203
  Transmission Date: 20190205
  Serious: Yes (Hospitalization)
  Sender: FDA-Public Use
  Company Number: IT-TEVA-2018-IT-979717

PATIENT
  Age: 53 Year
  Sex: Female
  Weight: 72 kg

DRUGS (12)
  1. RYTMONORM [Suspect]
     Active Substance: PROPAFENONE
     Dosage: 1 DOSAGE FORMS DAILY;
     Route: 048
  2. PAROXETINE. [Suspect]
     Active Substance: PAROXETINE
     Dosage: 20 MILLIGRAM DAILY;
     Route: 048
  3. TORA-DOL 20 MG/ML GOCCE ORALI, SOLUZIONE [Suspect]
     Active Substance: KETOROLAC TROMETHAMINE
     Indication: HEADACHE
     Route: 048
  4. IMIGRAN 100 MG COMPRESSE RIVESTITE CON FILM [Concomitant]
     Indication: HEADACHE
     Route: 048
  5. VALIUM [Suspect]
     Active Substance: DIAZEPAM
     Dosage: 10 GTT DAILY;
     Route: 048
  6. TOPAMAX 100 MG COMPRESSE RIVESTITE CON FILM [Concomitant]
     Route: 048
  7. DESCOVY [Suspect]
     Active Substance: EMTRICITABINE\TENOFOVIR ALAFENAMIDE FUMARATE
     Dosage: 1 DOSAGE FORMS DAILY;
     Route: 048
  8. ISENTRESS [Suspect]
     Active Substance: RALTEGRAVIR POTASSIUM
     Dosage: 1 DOSAGE FORMS DAILY;
     Route: 048
  9. LEVOTHYROXINE SODIUM. [Suspect]
     Active Substance: LEVOTHYROXINE SODIUM
     Dosage: 112.5 MILLIGRAM DAILY;
     Route: 048
  10. AULIN 100 MG GRANULATO PER SOSPENSIONE ORALE [Suspect]
     Active Substance: NIMESULIDE
     Indication: HEADACHE
     Route: 048
  11. LAROXYL 40 MG/ML GOCCE ORALI SOLUZIONE [Suspect]
     Active Substance: AMITRIPTYLINE HYDROCHLORIDE
     Route: 048
  12. BRUFEN [Suspect]
     Active Substance: IBUPROFEN
     Indication: HEADACHE
     Route: 048

REACTIONS (3)
  - Headache [Recovering/Resolving]
  - Condition aggravated [Recovering/Resolving]
  - Drug abuse [Recovering/Resolving]

NARRATIVE: CASE EVENT DATE: 20180213
